FAERS Safety Report 18475571 (Version 1)
Quarter: 2020Q4

REPORT INFORMATION
  Report Type: Spontaneous
  Country: US (occurrence: US)
  Receive Date: 20201107
  Receipt Date: 20201107
  Transmission Date: 20210114
  Serious: No
  Sender: FDA-Public Use
  Company Number: NVSC2020US289317

PATIENT
  Sex: Female

DRUGS (3)
  1. VIVELLE-DOT [Suspect]
     Active Substance: ESTRADIOL
     Dosage: 0.025 MG
     Route: 065
  2. VIVELLE-DOT [Suspect]
     Active Substance: ESTRADIOL
     Indication: PRODUCT USED FOR UNKNOWN INDICATION
     Dosage: 0.05 MG
     Route: 065
  3. ESTRADIOL. [Suspect]
     Active Substance: ESTRADIOL
     Indication: PRODUCT USED FOR UNKNOWN INDICATION
     Route: 065

REACTIONS (2)
  - Product adhesion issue [Unknown]
  - Drug ineffective [Unknown]
